FAERS Safety Report 9203585 (Version 2)
Quarter: 2014Q1

REPORT INFORMATION
  Report Type: Report from Study
  Country: JP (occurrence: JP)
  Receive Date: 20130402
  Receipt Date: 20140213
  Transmission Date: 20141002
  Serious: Yes (Other)
  Sender: FDA-Public Use
  Company Number: PHHY2013JP030934

PATIENT
  Age: 26 Year
  Sex: Male

DRUGS (19)
  1. LEPONEX / CLOZARIL [Suspect]
     Indication: SCHIZOPHRENIA, PARANOID TYPE
     Dosage: 12.5 MG,
     Route: 048
     Dates: start: 20121001, end: 20121001
  2. LEPONEX / CLOZARIL [Suspect]
     Dosage: 25 MG,
     Route: 048
     Dates: start: 20121002, end: 20121002
  3. LEPONEX / CLOZARIL [Suspect]
     Dosage: 50 MG,
     Route: 048
     Dates: start: 20121003, end: 20121004
  4. LEPONEX / CLOZARIL [Suspect]
     Dosage: 75 MG,
     Route: 048
     Dates: start: 20121005, end: 20121006
  5. LEPONEX / CLOZARIL [Suspect]
     Dosage: 100 MG,
     Route: 048
     Dates: start: 20121007, end: 20121008
  6. LEPONEX / CLOZARIL [Suspect]
     Dosage: 125 MG,
     Route: 048
     Dates: start: 20121009, end: 20121011
  7. LEPONEX / CLOZARIL [Suspect]
     Dosage: 150 MG, UNK
     Route: 048
     Dates: start: 20121012, end: 20121015
  8. LEPONEX / CLOZARIL [Suspect]
     Dosage: 175 MG,
     Route: 048
     Dates: start: 20121016, end: 20121018
  9. LEPONEX / CLOZARIL [Suspect]
     Dosage: 125 MG,
     Route: 048
     Dates: start: 20121019, end: 20121019
  10. LEPONEX / CLOZARIL [Suspect]
     Dosage: 75 MG,
     Route: 048
     Dates: start: 20121020, end: 20121020
  11. LEPONEX / CLOZARIL [Suspect]
     Dosage: 25 MG,
     Route: 048
     Dates: start: 20121021, end: 20121021
  12. ZYPREXA [Concomitant]
     Dosage: 15 MG, UNK
     Route: 048
     Dates: start: 20120130
  13. ZYPREXA [Concomitant]
     Dosage: 10 MG, UNK
     Route: 048
  14. ZYPREXA [Concomitant]
     Dosage: 5 MG, UNK
     Route: 048
     Dates: end: 20121015
  15. ZYPREXA [Concomitant]
     Dosage: 5 MG, UNK
     Dates: start: 20121128
  16. ZYPREXA [Concomitant]
     Dosage: 20 MG, DAILY
     Dates: start: 20130128
  17. DEPAKENE [Concomitant]
     Indication: SCHIZOPHRENIA, PARANOID TYPE
     Dosage: 400 MG, UNK
     Route: 048
     Dates: start: 20110827, end: 20121027
  18. LANDSEN [Concomitant]
     Indication: SCHIZOPHRENIA, PARANOID TYPE
     Dosage: 1 MG,
     Route: 048
     Dates: start: 20120203, end: 20121027
  19. TASMOLIN [Concomitant]
     Indication: SCHIZOPHRENIA, PARANOID TYPE
     Dosage: 1 MG, UNK
     Route: 048
     Dates: start: 20120125, end: 20121015

REACTIONS (21)
  - Catatonia [Recovering/Resolving]
  - Enterocolitis [Recovering/Resolving]
  - Diarrhoea [Recovering/Resolving]
  - Pneumonia bacterial [Recovering/Resolving]
  - Pneumonia aspiration [Recovered/Resolved]
  - Neuroleptic malignant syndrome [Not Recovered/Not Resolved]
  - Pyrexia [Not Recovered/Not Resolved]
  - Hypokalaemia [Recovered/Resolved]
  - Dyslalia [Recovered/Resolved]
  - Delusion [Recovered/Resolved]
  - Muscle rigidity [Recovered/Resolved]
  - Altered state of consciousness [Recovered/Resolved]
  - Haematocrit decreased [Unknown]
  - Neutrophil count increased [Unknown]
  - Hyperhidrosis [Recovered/Resolved]
  - Eosinophil count increased [Recovered/Resolved]
  - Tachycardia [Recovered/Resolved]
  - Hallucination [Recovered/Resolved]
  - White blood cell count increased [Recovered/Resolved]
  - Dysphagia [Unknown]
  - Drug withdrawal syndrome [Unknown]
